FAERS Safety Report 6104766-4 (Version None)
Quarter: 2009Q1

REPORT INFORMATION
  Report Type: 
  Country: None (occurrence: None)
  Receive Date: 20090304
  Receipt Date: 20090304
  Transmission Date: 20090719
  Serious: Yes (Other)
  Sender: FDA-Public Use
  Company Number: None

PATIENT
  Sex: Female

DRUGS (2)
  1. KEPPRA [Suspect]
     Indication: CONVULSION
     Dosage: 1 1/2 TABS BID PO
     Route: 048
     Dates: start: 20080228
  2. KEPPRA [Suspect]
     Indication: EPILEPSY
     Dosage: 1 1/2 TABS BID PO
     Route: 048
     Dates: start: 20080228

REACTIONS (7)
  - CHOKING [None]
  - CONFUSIONAL STATE [None]
  - CONVULSION [None]
  - MUSCULOSKELETAL STIFFNESS [None]
  - PRODUCT QUALITY ISSUE [None]
  - SCREAMING [None]
  - SKIN DISCOLOURATION [None]
